FAERS Safety Report 5297282-3 (Version None)
Quarter: 2007Q2

REPORT INFORMATION
  Report Type: 
  Country: None (occurrence: None)
  Receive Date: 20070416
  Receipt Date: 20070404
  Transmission Date: 20071010
  Serious: Yes (Hospitalization)
  Sender: FDA-Public Use
  Company Number: TR-ELI_LILLY_AND_COMPANY-TR200703003576

PATIENT
  Age: 36 Year
  Sex: Female

DRUGS (4)
  1. ZYPREXA [Suspect]
     Indication: SCHIZOAFFECTIVE DISORDER
     Dosage: 10 MG, UNK
     Route: 048
  2. ZYPREXA [Suspect]
     Dosage: 10 MG, DAILY (1/D) 5 TO 6 YEARS TOOK
     Route: 048
  3. ZYPREXA [Suspect]
     Dosage: 720 MG 72 TABLETS TAKEN
     Route: 048
     Dates: start: 20070312, end: 20070312
  4. LITHIUM CARBONATE [Concomitant]
     Indication: SCHIZOAFFECTIVE DISORDER
     Dosage: 600 MG, 3/D

REACTIONS (15)
  - AGITATION [None]
  - BLOOD GLUCOSE INCREASED [None]
  - DRUG TOXICITY [None]
  - INTENTIONAL OVERDOSE [None]
  - LEUKOCYTOSIS [None]
  - LOSS OF CONSCIOUSNESS [None]
  - LYMPHOCYTE COUNT DECREASED [None]
  - NAUSEA [None]
  - NEUTROPHIL PERCENTAGE INCREASED [None]
  - PYREXIA [None]
  - SUICIDE ATTEMPT [None]
  - TACHYCARDIA [None]
  - TACHYPNOEA [None]
  - VOMITING [None]
  - WEIGHT INCREASED [None]
